FAERS Safety Report 6844827-5 (Version None)
Quarter: 2010Q3

REPORT INFORMATION
  Report Type: 
  Country: None (occurrence: None)
  Receive Date: 20100715
  Receipt Date: 20100705
  Transmission Date: 20110219
  Serious: Yes (Death, Other)
  Sender: FDA-Public Use
  Company Number: GB-PFIZER INC-2010071458

PATIENT
  Sex: Female

DRUGS (1)
  1. LIPITOR [Suspect]
     Dosage: UNK

REACTIONS (9)
  - ABDOMINAL PAIN UPPER [None]
  - CONTUSION [None]
  - DECREASED APPETITE [None]
  - HAEMORRHAGE [None]
  - JOINT SWELLING [None]
  - MALAISE [None]
  - PARAESTHESIA [None]
  - POISONING [None]
  - RASH PRURITIC [None]
